FAERS Safety Report 16824621 (Version 2)
Quarter: 2019Q3

REPORT INFORMATION
  Report Type: Spontaneous
  Country: BE (occurrence: BE)
  Receive Date: 20190918
  Receipt Date: 20190923
  Transmission Date: 20191005
  Serious: Yes (Hospitalization, Other)
  Sender: FDA-Public Use
  Company Number: PHHY2019BE214186

PATIENT
  Age: 21 Year
  Sex: Male

DRUGS (10)
  1. VORICONAZOLE. [Suspect]
     Active Substance: VORICONAZOLE
     Dosage: 6 MG/KG, UNK (LOADING DOSE)
     Route: 042
  2. MELPHALAN. [Concomitant]
     Active Substance: MELPHALAN
     Indication: NON-HODGKIN^S LYMPHOMA
     Dosage: 140 MG/M2, UNK
     Route: 065
  3. RITUXIMAB. [Suspect]
     Active Substance: RITUXIMAB
     Indication: DIFFUSE LARGE B-CELL LYMPHOMA
     Dosage: 375 MG/M2, UNK
     Route: 065
  4. VORICONAZOLE. [Suspect]
     Active Substance: VORICONAZOLE
     Indication: ASPERGILLUS INFECTION
     Dosage: 4 MG/KG, UNK (MAINTAINANCE)
     Route: 042
  5. DEXAMETHASONE. [Suspect]
     Active Substance: DEXAMETHASONE
     Indication: DIFFUSE LARGE B-CELL LYMPHOMA
     Dosage: 50 MG, UNK
     Route: 065
  6. CYTARABINE. [Concomitant]
     Active Substance: CYTARABINE
     Indication: NON-HODGKIN^S LYMPHOMA
     Dosage: HIGH-DOSE ARA-C (2 ? 2000 MG/M2)
     Route: 065
  7. CARMUSTINE. [Concomitant]
     Active Substance: CARMUSTINE
     Indication: NON-HODGKIN^S LYMPHOMA
     Dosage: 300 MG/M2, BID
     Route: 065
  8. ETOPOSIDE. [Concomitant]
     Active Substance: ETOPOSIDE
     Indication: NON-HODGKIN^S LYMPHOMA
     Dosage: 200 MG/M2, UNK
     Route: 065
  9. CYTARABINE. [Concomitant]
     Active Substance: CYTARABINE
     Dosage: 400MG/M2 TWICE DAILY FOR 4 DAYS
     Route: 065
  10. CISPLATIN. [Suspect]
     Active Substance: CISPLATIN
     Indication: DIFFUSE LARGE B-CELL LYMPHOMA
     Dosage: 100 MG/M2, UNK
     Route: 065

REACTIONS (14)
  - Hepatotoxicity [Recovered/Resolved]
  - Gastrointestinal stoma complication [Recovered/Resolved]
  - Gastrointestinal inflammation [Recovered/Resolved]
  - Jejunal perforation [Recovered/Resolved]
  - Gastrointestinal infection [Recovered/Resolved]
  - Febrile neutropenia [Recovered/Resolved]
  - Haemodynamic instability [Recovered/Resolved]
  - Bronchopulmonary aspergillosis [Recovered/Resolved]
  - Small intestinal obstruction [Recovered/Resolved]
  - Cytomegalovirus infection [Recovered/Resolved]
  - Volvulus of small bowel [Recovered/Resolved]
  - Colitis [Recovered/Resolved]
  - Aspergillus infection [Recovered/Resolved]
  - Intestinal haemorrhage [Recovered/Resolved]
